FAERS Safety Report 24665905 (Version 1)
Quarter: 2024Q4

REPORT INFORMATION
  Report Type: Report from Study
  Country: US (occurrence: US)
  Receive Date: 20241126
  Receipt Date: 20241126
  Transmission Date: 20250114
  Serious: Yes (Hospitalization, Other)
  Sender: TAIHO ONCOLOGY INC
  Company Number: US-OTSUKA-2024_013448

PATIENT
  Age: 88 Year
  Sex: Male
  Weight: 78 kg

DRUGS (10)
  1. INQOVI [Suspect]
     Active Substance: CEDAZURIDINE\DECITABINE
     Indication: Myelodysplastic syndrome
     Dosage: 1 DF (35 MG DECITABINE AND 100 MG CEDAZURIDINE) DAILY ON DAYS 1-5 OF EACH 28-DAY CYCLE (CYCLE 3)
     Route: 048
     Dates: start: 20240215
  2. INQOVI [Suspect]
     Active Substance: CEDAZURIDINE\DECITABINE
     Dosage: 1 DF (35 MG DECITABINE AND 100 MG CEDAZURIDINE) DAILY ON DAYS 1-4 OF EACH 28-DAY CYCLE
     Route: 048
  3. NEXIUM [Concomitant]
     Active Substance: ESOMEPRAZOLE MAGNESIUM
     Indication: Product used for unknown indication
     Dosage: UNK
     Route: 065
  4. OLEA EUROPAEA LEAF [Concomitant]
     Active Substance: OLEA EUROPAEA LEAF
     Indication: Product used for unknown indication
     Dosage: UNK
     Route: 065
  5. PINE [Concomitant]
     Indication: Product used for unknown indication
     Dosage: UNK (POWDER)
     Route: 065
  6. METOPROLOL SUCCINATE [Concomitant]
     Active Substance: METOPROLOL SUCCINATE
     Indication: Product used for unknown indication
     Dosage: UNK
     Route: 065
  7. VITAMIN B12 [Concomitant]
     Active Substance: CYANOCOBALAMIN
     Indication: Product used for unknown indication
     Dosage: UNK
     Route: 065
  8. SIMVASTATIN [Concomitant]
     Active Substance: SIMVASTATIN
     Indication: Product used for unknown indication
     Dosage: UNK
     Route: 065
  9. ELIQUIS [Concomitant]
     Active Substance: APIXABAN
     Indication: Product used for unknown indication
     Dosage: UNK
     Route: 065
  10. LEVOTHYROXINE SODIUM [Concomitant]
     Active Substance: LEVOTHYROXINE SODIUM
     Indication: Product used for unknown indication
     Dosage: UNK
     Route: 065

REACTIONS (2)
  - Cytopenia [Unknown]
  - Infection [Recovered/Resolved]
